FAERS Safety Report 6557262-4 (Version None)
Quarter: 2010Q1

REPORT INFORMATION
  Report Type: 
  Country: None (occurrence: None)
  Receive Date: 20100129
  Receipt Date: 20100125
  Transmission Date: 20100710
  Serious: Yes (Hospitalization)
  Sender: FDA-Public Use
  Company Number: US-BIOGENIDEC-2010BI002684

PATIENT
  Sex: Male

DRUGS (1)
  1. TYSABRI [Suspect]
     Indication: MULTIPLE SCLEROSIS
     Route: 042
     Dates: start: 20091023

REACTIONS (5)
  - ACTIVITIES OF DAILY LIVING IMPAIRED [None]
  - DISEASE PROGRESSION [None]
  - ILL-DEFINED DISORDER [None]
  - MULTIPLE SCLEROSIS [None]
  - MYOCARDIAL INFARCTION [None]
